FAERS Safety Report 5911666-9 (Version None)
Quarter: 2008Q4

REPORT INFORMATION
  Report Type: 
  Country: None (occurrence: None)
  Receive Date: 20081003
  Receipt Date: 20080918
  Transmission Date: 20090506
  Serious: Yes (Other)
  Sender: FDA-Public Use
  Company Number: 08-001276

PATIENT
  Age: 52 Year
  Sex: Female

DRUGS (2)
  1. SARAFEM [Suspect]
     Indication: PREMENSTRUAL SYNDROME
     Dosage: 10 MG QD, ORAL
     Route: 048
     Dates: start: 20080701, end: 20080701
  2. SAREFEM /00724401/ (FLUOXETINE) CAPSULE, 10MG [Concomitant]

REACTIONS (8)
  - CORNEAL ABRASION [None]
  - DRY EYE [None]
  - EYE IRRITATION [None]
  - EYE PAIN [None]
  - KERATORHEXIS [None]
  - NO THERAPEUTIC RESPONSE [None]
  - SOMNOLENCE [None]
  - VISION BLURRED [None]
